FAERS Safety Report 5678385-8 (Version None)
Quarter: 2008Q1

REPORT INFORMATION
  Report Type: 
  Country: None (occurrence: None)
  Receive Date: 20080321
  Receipt Date: 20080311
  Transmission Date: 20080703
  Serious: Yes (Other)
  Sender: FDA-Public Use
  Company Number: 2008006241

PATIENT
  Age: 77 Year
  Weight: 70.3075 kg

DRUGS (1)
  1. LISTERINE ANTISEPTIC MOUTHWASH (MENTHOL, METHYL SALICYLATE, EUCALYPTOL [Suspect]
     Dosage: LESS THAN 4 TEASPOONS,ONCE, ORAL
     Route: 048
     Dates: start: 20071201, end: 20071201

REACTIONS (3)
  - CAUSTIC INJURY [None]
  - DYSGEUSIA [None]
  - PHARMACEUTICAL PRODUCT COMPLAINT [None]
